FAERS Safety Report 12705552 (Version 1)
Quarter: 2016Q3

REPORT INFORMATION
  Report Type: Spontaneous
  Country: FR (occurrence: FR)
  Receive Date: 20160901
  Receipt Date: 20160901
  Transmission Date: 20161109
  Serious: Yes (Hospitalization)
  Sender: FDA-Public Use
  Company Number: FR-ROCHE-1821874

PATIENT
  Age: 28 Year
  Sex: Male

DRUGS (11)
  1. CRACK COCAINE [Concomitant]
     Active Substance: COCAINE
  2. CANNABIS [Concomitant]
     Active Substance: CANNABIS SATIVA SUBSP. INDICA TOP
  3. VALIUM [Suspect]
     Active Substance: DIAZEPAM
     Indication: PRODUCT USED FOR UNKNOWN INDICATION
     Route: 048
     Dates: start: 20160626
  4. TIAPRIDE [Concomitant]
     Active Substance: TIAPRIDE
  5. TRANXENE T-TAB [Suspect]
     Active Substance: CLORAZEPATE DIPOTASSIUM
     Indication: PRODUCT USED FOR UNKNOWN INDICATION
     Route: 048
     Dates: start: 20160626
  6. THERALENE [Concomitant]
     Active Substance: TRIMEPRAZINE
  7. LOXAPAC [Concomitant]
     Active Substance: LOXAPINE SUCCINATE
  8. ABILIFY [Concomitant]
     Active Substance: ARIPIPRAZOLE
  9. HEROIN [Concomitant]
     Active Substance: DIACETYLMORPHINE
  10. LAROXYL [Concomitant]
     Active Substance: AMITRIPTYLINE
  11. DEPAMIDE [Concomitant]
     Active Substance: VALPROMIDE

REACTIONS (2)
  - Substance abuse [Unknown]
  - Poisoning [Recovered/Resolved]

NARRATIVE: CASE EVENT DATE: 20160626
